FAERS Safety Report 9642647 (Version 3)
Quarter: 2013Q4

REPORT INFORMATION
  Report Type: Spontaneous
  Country: US (occurrence: US)
  Receive Date: 20131024
  Receipt Date: 20131108
  Transmission Date: 20140711
  Serious: No
  Sender: FDA-Public Use
  Company Number: US-PFIZER INC-2013300240

PATIENT
  Age: 78 Year
  Sex: Female
  Weight: 59 kg

DRUGS (5)
  1. CHANTIX [Suspect]
     Indication: SMOKING CESSATION THERAPY
     Dosage: 0.5 MG, 1X/DAY
     Route: 048
     Dates: start: 20130315, end: 20130322
  2. ASA [Concomitant]
     Dosage: 81 MG, DAILY
  3. LIPITOR [Concomitant]
     Dosage: 20 MG, DAILY
  4. DILANTIN [Concomitant]
     Dosage: 300 MG, DAILY
  5. METOPROLOL [Concomitant]
     Dosage: 50 MG, DAILY

REACTIONS (4)
  - Activities of daily living impaired [Recovering/Resolving]
  - Asthenia [Recovering/Resolving]
  - Apathy [Recovering/Resolving]
  - Sleep disorder [Recovering/Resolving]
